FAERS Safety Report 4325528-4 (Version None)
Quarter: 2004Q1

REPORT INFORMATION
  Report Type: 
  Country: None (occurrence: None)
  Receive Date: 20040324
  Receipt Date: 20040308
  Transmission Date: 20041129
  Serious: Yes (Other)
  Sender: FDA-Public Use
  Company Number: USA040361311

PATIENT
  Age: 64 Year

DRUGS (5)
  1. EVISTA [Suspect]
     Indication: OSTEOPOROSIS
     Dosage: 60 MG DAY
     Dates: start: 20040123
  2. TOPAMAX (ALENDRONATE SODIUM) [Concomitant]
  3. NORPACE [Concomitant]
  4. ATENOLOL [Concomitant]
  5. CALCIUM [Concomitant]

REACTIONS (1)
  - THORACIC VERTEBRAL FRACTURE [None]
